FAERS Safety Report 10050521 (Version 1)
Quarter: 2014Q2

REPORT INFORMATION
  Report Type: Spontaneous
  Country: US (occurrence: US)
  Receive Date: 20140401
  Receipt Date: 20140401
  Transmission Date: 20141212
  Serious: No
  Sender: FDA-Public Use
  Company Number: US-ASTRAZENECA-2013SE87529

PATIENT
  Age: 51 Year
  Sex: Female
  Weight: 77.1 kg

DRUGS (3)
  1. NEXIUM [Suspect]
     Indication: GASTRITIS
     Route: 048
     Dates: start: 20131120
  2. PRILOSEC [Suspect]
     Indication: GASTRITIS
     Route: 048
     Dates: start: 201307, end: 20131001
  3. CRYSELLE [Concomitant]
     Indication: ORAL CONTRACEPTION
     Dosage: TAKE 1PILL DAILY
     Route: 048
     Dates: start: 1999

REACTIONS (4)
  - Cholelithiasis [Unknown]
  - Gastritis [Unknown]
  - Off label use [Unknown]
  - Off label use [Unknown]
